FAERS Safety Report 9922528 (Version 2)
Quarter: 2014Q1

REPORT INFORMATION
  Report Type: Report from Study
  Country: CA (occurrence: CA)
  Receive Date: 20140225
  Receipt Date: 20140305
  Transmission Date: 20141002
  Serious: Yes (Death, Hospitalization, Disabling, Other)
  Sender: FDA-Public Use
  Company Number: CA-ABBVIE-14P-028-1203095-00

PATIENT
  Age: 84 Year
  Sex: Male
  Weight: 69.01 kg

DRUGS (3)
  1. LUPRON DEPOT [Suspect]
     Indication: PROSTATE CANCER
     Route: 050
     Dates: start: 20120201
  2. XGEVA [Concomitant]
     Indication: PRODUCT USED FOR UNKNOWN INDICATION
  3. ZITIGA [Concomitant]
     Indication: PRODUCT USED FOR UNKNOWN INDICATION

REACTIONS (7)
  - Abasia [Unknown]
  - Abasia [Unknown]
  - Movement disorder [Unknown]
  - Death [Fatal]
  - Metastasis [Not Recovered/Not Resolved]
  - Metastases to spine [Not Recovered/Not Resolved]
  - Pain [Not Recovered/Not Resolved]
